FAERS Safety Report 5919534-3 (Version None)
Quarter: 2008Q4

REPORT INFORMATION
  Report Type: 
  Country: None (occurrence: None)
  Receive Date: 20081014
  Receipt Date: 20081014
  Transmission Date: 20090506
  Serious: Yes (Hospitalization)
  Sender: FDA-Public Use
  Company Number: None

PATIENT
  Sex: Female
  Weight: 90 kg

DRUGS (2)
  1. LOVENOX [Suspect]
     Indication: HIP FRACTURE
     Dosage: 40MG DAILY SQ
     Route: 058
     Dates: start: 20080525, end: 20080527
  2. LOVENOX [Suspect]
     Indication: SURGERY
     Dosage: 40MG DAILY SQ
     Route: 058
     Dates: start: 20080525, end: 20080527

REACTIONS (1)
  - HEPARIN-INDUCED THROMBOCYTOPENIA [None]
